FAERS Safety Report 8197130-8 (Version None)
Quarter: 2012Q1

REPORT INFORMATION
  Report Type: 
  Country: None (occurrence: None)
  Receive Date: 20120309
  Receipt Date: 20120301
  Transmission Date: 20120608
  Serious: Yes (Other)
  Sender: FDA-Public Use
  Company Number: JP-ASTELLAS-2012JP001813

PATIENT
  Age: 52 Year
  Sex: Female

DRUGS (5)
  1. PROGRAF [Suspect]
     Indication: STILL'S DISEASE ADULT ONSET
     Route: 065
  2. PREDNISOLONE [Concomitant]
     Dosage: 20 MG, UNKNOWN/D
     Route: 065
  3. STEROID [Concomitant]
     Route: 065
  4. METHOTREXATE [Concomitant]
     Route: 065
  5. PREDNISOLONE [Concomitant]
     Dosage: 50 MG, UNKNOWN/D
     Route: 065
     Dates: start: 20110805

REACTIONS (2)
  - LIVER DISORDER [None]
  - OFF LABEL USE [None]
